FAERS Safety Report 9726259 (Version 1)
Quarter: 2013Q4

REPORT INFORMATION
  Report Type: Spontaneous
  Country: US (occurrence: None)
  Receive Date: 20131202
  Receipt Date: 20131202
  Transmission Date: 20140711
  Serious: Yes (Hospitalization)
  Sender: FDA-Public Use
  Company Number: None

PATIENT
  Age: 19 Year
  Sex: Female
  Weight: 49.6 kg

DRUGS (3)
  1. CYCLOPHOSPHAMIDE [Suspect]
     Dates: end: 20131105
  2. CYTARABINE [Suspect]
     Dates: end: 20131115
  3. THIOGUANINE [Suspect]
     Dates: end: 20131118

REACTIONS (7)
  - Febrile neutropenia [None]
  - Vomiting [None]
  - Diarrhoea [None]
  - Abdominal pain [None]
  - Abdominal distension [None]
  - Abdominal discomfort [None]
  - Hepatic vein occlusion [None]
